FAERS Safety Report 17341299 (Version 2)
Quarter: 2020Q1

REPORT INFORMATION
  Report Type: Report from Study
  Country: US (occurrence: US)
  Receive Date: 20200129
  Receipt Date: 20200203
  Transmission Date: 20200409
  Serious: Yes (Death, Life-Threatening, Hospitalization, Other)
  Sender: FDA-Public Use
  Company Number: US-NOVOPROD-665777

PATIENT
  Age: 5 Month
  Sex: Male
  Weight: 7.8 kg

DRUGS (2)
  1. N9-GP (NONACOG BETA PEGOL) [Suspect]
     Active Substance: COAGULATION FACTOR IX (RECOMBINANT), GLYCOPEGYLATED
     Indication: FACTOR IX DEFICIENCY
     Dosage: 80.0,U/KG,
     Route: 040
     Dates: start: 20190330, end: 20190529
  2. N9-GP (NONACOG BETA PEGOL) [Suspect]
     Active Substance: COAGULATION FACTOR IX (RECOMBINANT), GLYCOPEGYLATED
     Indication: FACTOR IX DEFICIENCY

REACTIONS (2)
  - Haemorrhage intracranial [Fatal]
  - Factor IX inhibition [Not Recovered/Not Resolved]

NARRATIVE: CASE EVENT DATE: 20190528
